FAERS Safety Report 8773870 (Version 3)
Quarter: 2012Q4

REPORT INFORMATION
  Report Type: 
  Country: IT (occurrence: IT)
  Receive Date: 20120907
  Receipt Date: 20121002
  Transmission Date: 20130627
  Serious: Yes (Hospitalization, Disabling)
  Sender: FDA-Public Use
  Company Number: IT-BRISTOL-MYERS SQUIBB COMPANY-16908550

PATIENT
  Age: 58 Year
  Sex: Female

DRUGS (5)
  1. ABILIFY TABS 30 MG [Suspect]
     Indication: PSYCHOTIC DISORDER
     Dates: start: 20120503, end: 20120827
  2. LORAZEPAM [Suspect]
     Dosage: 5mg/die
     Route: 048
  3. HALDOL [Suspect]
     Dosage: 0.2%drops,b/w 7-8mg/die
     Route: 048
  4. MINIAS [Suspect]
     Dosage: 2mg/die
  5. DISIPAL [Suspect]
     Dosage: 50-100mg/die

REACTIONS (3)
  - Blindness unilateral [Not Recovered/Not Resolved]
  - Angle closure glaucoma [Not Recovered/Not Resolved]
  - Ulcerative keratitis [Not Recovered/Not Resolved]
